FAERS Safety Report 9982515 (Version 1)
Quarter: 2014Q1

REPORT INFORMATION
  Report Type: Spontaneous
  Country: US (occurrence: US)
  Receive Date: 20140307
  Receipt Date: 20140307
  Transmission Date: 20141002
  Serious: Yes (Death)
  Sender: FDA-Public Use
  Company Number: US-MALLINCKRODT-T201401398

PATIENT
  Sex: Female

DRUGS (1)
  1. FENTANYL CITRATE [Suspect]
     Indication: PAIN MANAGEMENT
     Dosage: 200 MCG
     Route: 065
     Dates: start: 20120317

REACTIONS (1)
  - Death [Fatal]
